FAERS Safety Report 21386471 (Version 8)
Quarter: 2023Q4

REPORT INFORMATION
  Report Type: Other
  Country: CA (occurrence: None)
  Receive Date: 20220928
  Receipt Date: 20231009
  Transmission Date: 20240110
  Serious: No
  Sender: FDA-Public Use
  Company Number: CA-ROCHE-3186445

PATIENT
  Age: 34 Year
  Sex: Female

DRUGS (4)
  1. OCREVUS [Suspect]
     Active Substance: OCRELIZUMAB
     Indication: Relapsing-remitting multiple sclerosis
     Dosage: THEN 600 MG EVERY 6 MONTH
     Route: 042
     Dates: start: 20210902
  2. OCREVUS [Suspect]
     Active Substance: OCRELIZUMAB
     Route: 042
     Dates: start: 20231005
  3. ALESSE 28 [Concomitant]
     Active Substance: ETHINYL ESTRADIOL\LEVONORGESTREL
     Indication: Contraception
  4. ZOPICLONE [Concomitant]
     Active Substance: ZOPICLONE
     Dosage: 7.5MG - PRESCRIBED IN NOVEMBER 2021 - TAKES 1/2 A PILL AS NEEDED FOR SLEEPING PROBLEMS THAT SHE HAS

REACTIONS (11)
  - Disturbance in attention [Not Recovered/Not Resolved]
  - Dizziness [Not Recovered/Not Resolved]
  - Nausea [Not Recovered/Not Resolved]
  - Paraesthesia [Not Recovered/Not Resolved]
  - Fatigue [Unknown]
  - Fungal infection [Not Recovered/Not Resolved]
  - Infusion related reaction [Recovered/Resolved]
  - Anxiety [Unknown]
  - Headache [Unknown]
  - Feeling abnormal [Unknown]
  - Infusion related reaction [Recovered/Resolved]

NARRATIVE: CASE EVENT DATE: 20220920
